FAERS Safety Report 6450454-4 (Version None)
Quarter: 2009Q4

REPORT INFORMATION
  Report Type: 
  Country: None (occurrence: None)
  Receive Date: 20091123
  Receipt Date: 20091119
  Transmission Date: 20100525
  Serious: Yes (Other)
  Sender: FDA-Public Use
  Company Number: CA-BAYER-200932358NA

PATIENT
  Age: 5 Year
  Sex: Male

DRUGS (1)
  1. CIPRO [Suspect]
     Indication: DRUG USE FOR UNKNOWN INDICATION
     Route: 048
     Dates: start: 20070101, end: 20070101

REACTIONS (5)
  - CHONDROPATHY [None]
  - JOINT EFFUSION [None]
  - MENISCUS LESION [None]
  - OSTEOCHONDROSIS [None]
  - TENDON DISORDER [None]
